FAERS Safety Report 10029508 (Version 1)
Quarter: 2014Q1

REPORT INFORMATION
  Report Type: Spontaneous
  Country: US (occurrence: None)
  Receive Date: 20140320
  Receipt Date: 20140320
  Transmission Date: 20141002
  Serious: Yes (Other)
  Sender: FDA-Public Use
  Company Number: None

PATIENT
  Age: 85 Year
  Sex: Female
  Weight: 64.41 kg

DRUGS (1)
  1. AMOX-CLAV [Suspect]
     Indication: BRONCHITIS
     Route: 048
     Dates: start: 20140305, end: 20140306

REACTIONS (3)
  - Haemorrhoids [None]
  - Faeces discoloured [None]
  - Abnormal faeces [None]
